FAERS Safety Report 8239852-6 (Version None)
Quarter: 2012Q1

REPORT INFORMATION
  Report Type: 
  Country: None (occurrence: None)
  Receive Date: 20120328
  Receipt Date: 20120321
  Transmission Date: 20120608
  Serious: Yes (Hospitalization)
  Sender: FDA-Public Use
  Company Number: PHHY2012FR025077

PATIENT
  Age: 57 Year
  Sex: Female

DRUGS (2)
  1. NEO-MERCAZOLE TAB [Concomitant]
     Indication: HYPERTHYROIDISM
     Dosage: UNK
  2. GLEEVEC [Suspect]
     Indication: GASTROINTESTINAL STROMAL TUMOUR
     Dosage: UNK
     Dates: start: 20101101, end: 20120203

REACTIONS (4)
  - SEPTIC SHOCK [None]
  - TUMOUR NECROSIS [None]
  - ILEUS [None]
  - GASTROINTESTINAL PERFORATION [None]
